FAERS Safety Report 9300294 (Version 1)
Quarter: 2012Q4

REPORT INFORMATION
  Report Type: Spontaneous
  Country: US (occurrence: None)
  Receive Date: 20121106
  Receipt Date: 20121106
  Transmission Date: 20130627
  Serious: Yes (Other)
  Sender: FDA-Public Use
  Company Number: 2012-3934

PATIENT
  Age: 10 Year
  Sex: Male
  Weight: 23.81 kg

DRUGS (5)
  1. INCRELEX [Suspect]
     Indication: GROWTH HORMONE DEFICIENCY
     Route: 030
     Dates: start: 20110917
  2. INCRELEX [Suspect]
     Indication: DRUG USE FOR UNAPPROVED INDICATION
     Route: 030
     Dates: start: 20110917
  3. ADDERALL [Suspect]
     Indication: ADHD
  4. MULTIVITAMIN (MULTIVITAMIN) [Concomitant]
  5. MELATONIN (MELATONIN) (MELATONIN) [Concomitant]

REACTIONS (8)
  - Sleep apnoea syndrome [None]
  - Tonsillar hypertrophy [None]
  - Decreased appetite [None]
  - Restless legs syndrome [None]
  - Poor quality sleep [None]
  - Snoring [None]
  - Incorrect route of drug administration [None]
  - Growth retardation [None]
